FAERS Safety Report 13378744 (Version 1)
Quarter: 2017Q1

REPORT INFORMATION
  Report Type: Spontaneous
  Country: US (occurrence: US)
  Receive Date: 20170328
  Receipt Date: 20170328
  Transmission Date: 20170429
  Serious: No
  Sender: FDA-Public Use
  Company Number: US-ROCHE-1155204

PATIENT
  Age: 57 Year
  Sex: Female

DRUGS (2)
  1. XOLAIR [Suspect]
     Active Substance: OMALIZUMAB
     Indication: ASTHMA
  2. XOLAIR [Suspect]
     Active Substance: OMALIZUMAB
     Indication: OBSTRUCTIVE AIRWAYS DISORDER
     Route: 058

REACTIONS (1)
  - Pain in extremity [Not Recovered/Not Resolved]
